FAERS Safety Report 21755567 (Version 2)
Quarter: 2023Q1

REPORT INFORMATION
  Report Type: Report from Study
  Country: CA (occurrence: CA)
  Receive Date: 20221220
  Receipt Date: 20230112
  Transmission Date: 20230417
  Serious: Yes (Hospitalization, Other)
  Sender: FDA-Public Use
  Company Number: CA-HLS-202201978

PATIENT
  Age: 76 Year
  Sex: Male
  Weight: 54 kg

DRUGS (3)
  1. CLOZARIL [Suspect]
     Active Substance: CLOZAPINE
     Indication: Schizophrenia
     Route: 048
     Dates: start: 20210224
  2. CLOZARIL [Suspect]
     Active Substance: CLOZAPINE
     Indication: Schizophrenia
     Dosage: DRUG START: 24-OCT-2022?DRUG STOPPED: 10-NOV-2022
     Route: 048
  3. CLOZARIL [Suspect]
     Active Substance: CLOZAPINE
     Indication: Schizophrenia
     Dosage: UNKNOWN
     Route: 048

REACTIONS (4)
  - Therapy interrupted [Recovered/Resolved]
  - Therapy interrupted [Recovered/Resolved]
  - Therapy interrupted [Recovered/Resolved]
  - Rebound psychosis [Unknown]

NARRATIVE: CASE EVENT DATE: 20221019
